FAERS Safety Report 12130402 (Version 1)
Quarter: 2016Q1

REPORT INFORMATION
  Report Type: Spontaneous
  Country: US (occurrence: None)
  Receive Date: 20160229
  Receipt Date: 20160229
  Transmission Date: 20160526
  Serious: Yes (Other)
  Sender: FDA-Public Use
  Company Number: None

PATIENT
  Age: 71 Year
  Sex: Male
  Weight: 124.74 kg

DRUGS (6)
  1. LACTOLOSE [Concomitant]
  2. DOXYCYCLINE. [Concomitant]
     Active Substance: DOXYCYCLINE
  3. ONDANSETRON [Concomitant]
     Active Substance: ONDANSETRON
  4. FURESEMIDE [Concomitant]
  5. AZELASTINE HCL [Suspect]
     Active Substance: AZELASTINE HYDROCHLORIDE
     Dosage: 1 TO 2 SPRAYS EACH NOSTRI; TWICE DAILY INHALATION
     Route: 055
     Dates: start: 20160225
  6. SYNTHROID [Concomitant]
     Active Substance: LEVOTHYROXINE SODIUM

REACTIONS (1)
  - Epistaxis [None]

NARRATIVE: CASE EVENT DATE: 20160225
